FAERS Safety Report 5728887-0 (Version None)
Quarter: 2008Q2

REPORT INFORMATION
  Report Type: 
  Country: None (occurrence: None)
  Receive Date: 20080430
  Receipt Date: 20080121
  Transmission Date: 20081010
  Serious: No
  Sender: FDA-Public Use
  Company Number: 2008PV033989

PATIENT
  Age: 75 Year
  Sex: Male
  Weight: 62.5964 kg

DRUGS (5)
  1. SYMLIN (PRAMLINTIDE ACEATE)  INJECTION (0.6 MG/ML) [Suspect]
     Indication: GLUCOSE TOLERANCE IMPAIRED
     Dosage: 15 MCG;TID;SC
     Route: 058
     Dates: start: 20080101, end: 20080101
  2. HUMALOG [Concomitant]
  3. LANTUS [Concomitant]
  4. JANUVIA [Concomitant]
  5. ACTOS [Concomitant]

REACTIONS (2)
  - DYSPEPSIA [None]
  - NAUSEA [None]
